FAERS Safety Report 24293900 (Version 1)
Quarter: 2024Q3

REPORT INFORMATION
  Report Type: Spontaneous
  Country: US (occurrence: None)
  Receive Date: 20240906
  Receipt Date: 20240906
  Transmission Date: 20241017
  Serious: No
  Sender: DOMPE FARMACEUTICI
  Company Number: US-FARMAPROD-202308-202403-0895

PATIENT
  Sex: Female

DRUGS (4)
  1. OXERVATE [Suspect]
     Active Substance: CENEGERMIN-BKBJ
     Indication: Neurotrophic keratopathy
     Route: 047
     Dates: start: 20240217, end: 20240220
  2. PRED FORTE [Concomitant]
     Active Substance: PREDNISOLONE ACETATE
     Dates: start: 202211
  3. KLARITY C [Concomitant]
     Dates: start: 202310
  4. SERUM TEARS [Concomitant]
     Dates: start: 202401

REACTIONS (4)
  - Drug hypersensitivity [Recovered/Resolved]
  - Eye pain [Recovered/Resolved]
  - Eye irritation [Recovered/Resolved]
  - Ocular hyperaemia [Recovered/Resolved]
